FAERS Safety Report 8151361-1 (Version None)
Quarter: 2012Q1

REPORT INFORMATION
  Report Type: 
  Country: None (occurrence: None)
  Receive Date: 20120220
  Receipt Date: 20120210
  Transmission Date: 20120608
  Serious: No
  Sender: FDA-Public Use
  Company Number: US-BAYER-2012-014885

PATIENT
  Age: 82 Year
  Sex: Male

DRUGS (4)
  1. WARFARIN SODIUM [Concomitant]
  2. COREG [Concomitant]
  3. LEVITRA [Suspect]
     Indication: ERECTILE DYSFUNCTION
     Dosage: 20 MG, PRN
     Route: 048
     Dates: start: 20111001
  4. UNKNOWN [Concomitant]

REACTIONS (1)
  - ERECTILE DYSFUNCTION [None]
